FAERS Safety Report 20321236 (Version 1)
Quarter: 2022Q1

REPORT INFORMATION
  Report Type: Spontaneous
  Country: US (occurrence: None)
  Receive Date: 20220110
  Receipt Date: 20220110
  Transmission Date: 20220423
  Serious: Yes (Death)
  Sender: FDA-Public Use
  Company Number: None

PATIENT
  Age: 58 Year
  Sex: Male

DRUGS (15)
  1. BRAFTOVI [Suspect]
     Active Substance: ENCORAFENIB
  2. ACETAMIN [Concomitant]
  3. BACLOFEN [Concomitant]
     Active Substance: BACLOFEN
  4. COTELLIC [Concomitant]
  5. MEKTOVI [Concomitant]
  6. METHYLPRED TAB [Concomitant]
  7. MORPHINE SUL [Concomitant]
  8. ONDANSETRON [Concomitant]
  9. ONDANSETRON [Concomitant]
  10. OXYCODONE AND ACETAMINOPHEN [Concomitant]
     Active Substance: ACETAMINOPHEN\OXYCODONE HYDROCHLORIDE
  11. OXYCODONE [Concomitant]
  12. OXYCODONE [Concomitant]
  13. OXYCONTIN [Concomitant]
  14. PREDNISONE [Concomitant]
  15. ZELBORAF [Concomitant]

REACTIONS (1)
  - Death [None]

NARRATIVE: CASE EVENT DATE: 20211206
